FAERS Safety Report 8377776-4 (Version None)
Quarter: 2012Q2

REPORT INFORMATION
  Report Type: 
  Country: None (occurrence: None)
  Receive Date: 20120521
  Receipt Date: 20120509
  Transmission Date: 20120825
  Serious: Yes (Life-Threatening, Hospitalization, Disabling, Other)
  Sender: FDA-Public Use
  Company Number: 2011MA003612

PATIENT
  Sex: Male
  Weight: 106.1417 kg

DRUGS (95)
  1. ALBUTEROL [Concomitant]
  2. AVANDIA [Concomitant]
  3. AVAPRO [Concomitant]
  4. CIPROFLOXACIN HCL [Concomitant]
  5. COUMADIN [Concomitant]
  6. DESITIN [Concomitant]
  7. ENTACAPONE [Concomitant]
  8. LASIX [Concomitant]
  9. LEVALBUTEROL HCL [Concomitant]
  10. LOVASTATIN [Concomitant]
  11. LEXAPRO [Concomitant]
  12. MAGNESIUM HYDROXIDE TAB [Concomitant]
  13. METOPROLOL [Concomitant]
  14. OMNICEF [Concomitant]
  15. PREVACID [Concomitant]
  16. SINGULAIR [Concomitant]
  17. XANAX [Concomitant]
  18. ALDACTONE [Concomitant]
  19. AMIODARONE HCL [Concomitant]
  20. DEMEROL [Concomitant]
  21. ERYTHROMYCIN [Concomitant]
  22. OMEPRAZOLE [Concomitant]
  23. PHENERGAN [Concomitant]
  24. SUCRALFATE [Concomitant]
  25. SURFAX [Concomitant]
  26. ALLEGRA [Concomitant]
  27. ARTANE [Concomitant]
  28. ATROVENT [Concomitant]
  29. AVELOX [Concomitant]
  30. BACTRIM [Concomitant]
  31. CARAFATE [Concomitant]
  32. CARBIDOPA AND LEVODOPA [Concomitant]
  33. CLARITIN [Concomitant]
  34. LIDOCAINE [Concomitant]
  35. NORVASC [Concomitant]
  36. TEQUIN [Concomitant]
  37. ATENOLOL [Concomitant]
  38. COLACE [Concomitant]
  39. CORTISONE ACETATE [Concomitant]
  40. POTASSIUM CHLORIDE [Concomitant]
  41. LACRI-LUBE [Concomitant]
  42. PULMICORT [Concomitant]
  43. REQUIP [Concomitant]
  44. AMBIEN [Concomitant]
  45. AMOXICILLIN [Concomitant]
  46. ARISTOPAN [Concomitant]
  47. BUDESONIDE [Concomitant]
  48. MYLANTA [Concomitant]
  49. NEURONTIN [Concomitant]
  50. NITROGLYCERIN [Concomitant]
  51. POTASSIUM CHLORIDE [Concomitant]
  52. WARFARIN SODIUM [Concomitant]
  53. CAPOTEN [Concomitant]
  54. CITALOPRAM HYDROBROMIDE [Concomitant]
  55. ELOCON [Concomitant]
  56. HYTRIN [Concomitant]
  57. LOVENOX [Concomitant]
  58. PROTONIX [Concomitant]
  59. TENORMIN [Concomitant]
  60. TRIHEXYPHENIDYL HCL [Concomitant]
  61. EXTRA STRENGTH TYLENOL [Concomitant]
  62. ZOFRAN [Concomitant]
  63. METOCLOPRAMIDE [Suspect]
     Indication: GASTROOESOPHAGEAL REFLUX DISEASE
     Dosage: 10 MG;1 TAB AC + HS;PO
     Route: 048
     Dates: start: 20040323, end: 20071031
  64. METOCLOPRAMIDE [Suspect]
     Indication: NAUSEA
     Dosage: 10 MG;1 TAB AC + HS;PO
     Route: 048
     Dates: start: 20040323, end: 20071031
  65. METOCLOPRAMIDE [Suspect]
     Indication: ABDOMINAL PAIN
     Dosage: 10 MG;1 TAB AC + HS;PO
     Route: 048
     Dates: start: 20040323, end: 20071031
  66. METOCLOPRAMIDE [Suspect]
     Indication: IMPAIRED GASTRIC EMPTYING
     Dosage: 10 MG;1 TAB AC + HS;PO
     Route: 048
     Dates: start: 20040323, end: 20071031
  67. BACTROBAN [Concomitant]
  68. BETHANECOL [Concomitant]
  69. CAPTOPRIL [Concomitant]
  70. CARDIZEM [Concomitant]
  71. ESOMEPRAZOLE MAGNESIUM [Concomitant]
  72. HUMULIN R [Concomitant]
  73. INSULIN [Concomitant]
  74. IPRATROPIUM BROMIDE [Concomitant]
  75. LIQUIFILM [Concomitant]
  76. MACROBID [Concomitant]
  77. MIRAPEX [Concomitant]
  78. MUCOMYST [Concomitant]
  79. NATRECOR [Concomitant]
  80. PROSCAR [Concomitant]
  81. URECHOLINE [Concomitant]
  82. VITAMIN B-12 [Concomitant]
  83. ACETYLCYSTEINE [Concomitant]
  84. ALPRAZOLAM [Concomitant]
  85. ALUMINUM HYDROXIDE/MAGNESIUM HYDROXIDE/SIMETHICONE [Concomitant]
  86. DILTIAZEM [Concomitant]
  87. GLUCOPHAGE [Concomitant]
  88. HUMULIN N [Concomitant]
  89. M.V.I. [Concomitant]
  90. NEXIUM [Concomitant]
  91. SIMETHICONE [Concomitant]
  92. SINEMET [Concomitant]
  93. VICODIN [Concomitant]
  94. ASCORBIC ACID [Concomitant]
  95. ZOCOR [Concomitant]

REACTIONS (107)
  - INCORRECT DRUG ADMINISTRATION DURATION [None]
  - PARKINSON'S DISEASE [None]
  - FAMILY STRESS [None]
  - ABDOMINAL ADHESIONS [None]
  - CHOLECYSTITIS [None]
  - FATIGUE [None]
  - ATRIAL FIBRILLATION [None]
  - GALLBLADDER ABSCESS [None]
  - GASTROOESOPHAGEAL REFLUX DISEASE [None]
  - HYPONATRAEMIA [None]
  - PULSELESS ELECTRICAL ACTIVITY [None]
  - SNEEZING [None]
  - DISTURBANCE IN ATTENTION [None]
  - MALAISE [None]
  - RENAL CYST [None]
  - WEIGHT DECREASED [None]
  - PANCREATITIS [None]
  - CHOLELITHIASIS [None]
  - ABSCESS [None]
  - OBESITY [None]
  - HAEMATOMA [None]
  - SKIN HYPERPIGMENTATION [None]
  - PULMONARY HYPERTENSION [None]
  - THROAT IRRITATION [None]
  - GAIT DISTURBANCE [None]
  - OEDEMA PERIPHERAL [None]
  - DUODENITIS [None]
  - OBSTRUCTION GASTRIC [None]
  - IMPAIRED HEALING [None]
  - PROCEDURAL VOMITING [None]
  - DIABETIC NEUROPATHY [None]
  - IMPAIRED GASTRIC EMPTYING [None]
  - ASTHENIA [None]
  - GASTROINTESTINAL MOTILITY DISORDER [None]
  - HYPERLIPIDAEMIA [None]
  - COGWHEEL RIGIDITY [None]
  - ANXIETY [None]
  - DECREASED INTEREST [None]
  - MITRAL VALVE INCOMPETENCE [None]
  - TRICUSPID VALVE INCOMPETENCE [None]
  - REFUSAL OF TREATMENT BY PATIENT [None]
  - MYOCARDIAL INFARCTION [None]
  - ABDOMINAL TENDERNESS [None]
  - MALNUTRITION [None]
  - HEPATIC HAEMATOMA [None]
  - HYPOGLYCAEMIA [None]
  - CARDIAC FAILURE CONGESTIVE [None]
  - RENAL FAILURE ACUTE [None]
  - DIABETIC ULCER [None]
  - RESTRICTIVE PULMONARY DISEASE [None]
  - CARPAL TUNNEL SYNDROME [None]
  - EMOTIONAL DISORDER [None]
  - ECONOMIC PROBLEM [None]
  - ABDOMINAL PAIN UPPER [None]
  - NAUSEA [None]
  - SLEEP APNOEA SYNDROME [None]
  - CONSTIPATION [None]
  - MAJOR DEPRESSION [None]
  - URINARY TRACT INFECTION [None]
  - INTESTINAL STENOSIS [None]
  - PLEURAL EFFUSION [None]
  - RHINITIS ALLERGIC [None]
  - EXOSTOSIS [None]
  - INTERNATIONAL NORMALISED RATIO INCREASED [None]
  - HAEMORRHOIDS [None]
  - TARDIVE DYSKINESIA [None]
  - TACHYCARDIA [None]
  - PROCEDURAL PAIN [None]
  - INCISION SITE INFECTION [None]
  - VENOUS INSUFFICIENCY [None]
  - WOUND INFECTION STAPHYLOCOCCAL [None]
  - PROTHROMBIN TIME PROLONGED [None]
  - GASTROINTESTINAL SOUNDS ABNORMAL [None]
  - DIZZINESS [None]
  - DIARRHOEA [None]
  - TREATMENT NONCOMPLIANCE [None]
  - ABDOMINAL DISCOMFORT [None]
  - ENDOSCOPIC RETROGRADE CHOLANGIOPANCREATOGRAPHY [None]
  - GALLBLADDER FISTULA [None]
  - CONDUCTION DISORDER [None]
  - TYPE 2 DIABETES MELLITUS [None]
  - BRADYCARDIA [None]
  - BRONCHITIS [None]
  - SPUTUM DISCOLOURED [None]
  - EXCORIATION [None]
  - WALKING AID USER [None]
  - DECREASED APPETITE [None]
  - ABDOMINAL DISTENSION [None]
  - FAECAL INCONTINENCE [None]
  - DYSPEPSIA [None]
  - HYPOAESTHESIA [None]
  - DIVERTICULUM INTESTINAL [None]
  - PYREXIA [None]
  - VENTRICULAR EXTRASYSTOLES [None]
  - POSTOPERATIVE ILEUS [None]
  - TREMOR [None]
  - NORMOCHROMIC NORMOCYTIC ANAEMIA [None]
  - GASTROINTESTINAL HYPOMOTILITY [None]
  - CEREBRAL ATROPHY [None]
  - ACUTE PRERENAL FAILURE [None]
  - WEIGHT INCREASED [None]
  - POSTOPERATIVE WOUND INFECTION [None]
  - NASOPHARYNGITIS [None]
  - HYPERCHOLESTEROLAEMIA [None]
  - CAROTID ARTERY STENOSIS [None]
  - MARROW HYPERPLASIA [None]
  - GASTRITIS [None]
